FAERS Safety Report 8358411-8 (Version None)
Quarter: 2012Q2

REPORT INFORMATION
  Report Type: 
  Country: None (occurrence: None)
  Receive Date: 20120514
  Receipt Date: 20120510
  Transmission Date: 20120825
  Serious: Yes (Other)
  Sender: FDA-Public Use
  Company Number: BR-ABBOTT-12P-020-0916663-00

PATIENT
  Age: 26 Year
  Sex: Male

DRUGS (3)
  1. FLUOXETINE [Concomitant]
     Indication: PRODUCT USED FOR UNKNOWN INDICATION
     Dates: start: 20100101
  2. VALPROATE SODIUM [Suspect]
     Indication: EPILEPSY
     Dosage: GASTRO-RESISTANT TABLET, 2000MG DAILY
     Route: 048
     Dates: start: 20111001, end: 20111015
  3. DEPAKENE [Concomitant]
     Indication: PRODUCT USED FOR UNKNOWN INDICATION
     Dosage: PREVIOUS

REACTIONS (2)
  - DRUG INEFFECTIVE [None]
  - CONVULSION [None]
